FAERS Safety Report 24205750 (Version 2)
Quarter: 2024Q3

REPORT INFORMATION
  Report Type: Spontaneous
  Country: PT (occurrence: PT)
  Receive Date: 20240813
  Receipt Date: 20240909
  Transmission Date: 20241016
  Serious: Yes (Disabling, Other)
  Sender: ASTELLAS
  Company Number: PT-GILEAD-2024-0682753

PATIENT
  Sex: Female

DRUGS (1)
  1. AMBISOME [Suspect]
     Active Substance: AMPHOTERICIN B
     Indication: Product used for unknown indication
     Dosage: 1 DF, EVERY 2 WEEKS (Q2WK) (1 NEBULIZATION EVERY 15DAYS-1/2 AMPOULE = 6 ML OF THE RECONSTITUTED TOTA
     Route: 055

REACTIONS (3)
  - Lung transplant [Recovered/Resolved]
  - Off label use [Not Recovered/Not Resolved]
  - Multiple use of single-use product [Unknown]
